FAERS Safety Report 13581318 (Version 3)
Quarter: 2017Q3

REPORT INFORMATION
  Report Type: Spontaneous
  Country: US (occurrence: US)
  Receive Date: 20170525
  Receipt Date: 20170908
  Transmission Date: 20171127
  Serious: No
  Sender: FDA-Public Use
  Company Number: US-GLAXOSMITHKLINE-US2017074033

PATIENT
  Age: 24 Year
  Sex: Male

DRUGS (1)
  1. FLONASE [Suspect]
     Active Substance: FLUTICASONE PROPIONATE
     Indication: HYPERSENSITIVITY
     Dosage: UNK
     Dates: start: 20170513, end: 20170514

REACTIONS (5)
  - Acne [Not Recovered/Not Resolved]
  - Rosacea [Unknown]
  - Product quality issue [Unknown]
  - Swelling face [Unknown]
  - Burning sensation [Unknown]

NARRATIVE: CASE EVENT DATE: 20170514
